FAERS Safety Report 5427603-X (Version None)
Quarter: 2007Q3

REPORT INFORMATION
  Report Type: 
  Country: None (occurrence: None)
  Receive Date: 20070828
  Receipt Date: 20070822
  Transmission Date: 20080115
  Serious: Yes (Hospitalization)
  Sender: FDA-Public Use
  Company Number: ES-AVENTIS-200711427GDDC

PATIENT
  Age: 56 Year
  Sex: Male
  Weight: 105 kg

DRUGS (4)
  1. LANTUS [Suspect]
     Route: 058
     Dates: start: 20061120, end: 20070202
  2. GLYBURIDE [Concomitant]
     Dosage: DOSE QUANTITY: 2
     Route: 048
     Dates: start: 20040101
  3. METFORMINE [Concomitant]
     Dosage: DOSE QUANTITY: 2
     Route: 048
     Dates: start: 20040101
  4. ADIRO [Concomitant]
     Dosage: DOSE QUANTITY: 1
     Route: 048
     Dates: start: 20050101

REACTIONS (2)
  - LEUKOCYTOCLASTIC VASCULITIS [None]
  - SKIN NECROSIS [None]
